FAERS Safety Report 7194793-0 (Version None)
Quarter: 2010Q4

REPORT INFORMATION
  Report Type: 
  Country: None (occurrence: None)
  Receive Date: 20101223
  Receipt Date: 20101214
  Transmission Date: 20110411
  Serious: Yes (Life-Threatening, Hospitalization, Other)
  Sender: FDA-Public Use
  Company Number: FI-ELI_LILLY_AND_COMPANY-FI201012003478

PATIENT
  Sex: Male

DRUGS (12)
  1. ZYPREXA [Suspect]
     Indication: INSOMNIA
     Dosage: 10 MG, DAILY (1/D)
     Route: 048
     Dates: start: 20101111, end: 20101123
  2. ALENDRONATE SODIUM [Concomitant]
     Dosage: 70 MG, WEEKLY (1/W)
     Route: 048
  3. TREXAN [Concomitant]
     Dosage: 10 MG, WEEKLY (1/W)
     Route: 048
  4. CIPRALEX [Concomitant]
     Indication: DEPRESSION
     Dosage: 10 MG, DAILY (1/D)
     Route: 048
  5. EPA [Concomitant]
     Indication: DEPRESSION
     Dosage: 1000 MG, DAILY (1/D)
     Route: 048
     Dates: start: 20101109, end: 20101123
  6. FOLVITE [Concomitant]
     Dosage: 5 MG, WEEKLY (1/W)
     Route: 048
  7. MINISUN [Concomitant]
     Dosage: UNK, 2/D
     Route: 048
  8. MIRTAZAPIN [Concomitant]
     Indication: DEPRESSION
     Dosage: 30 MG, DAILY (1/D)
     Route: 048
  9. PARA-TABS [Concomitant]
     Dosage: UNK UNK,
     Route: 048
     Dates: start: 20101109
  10. SALAZOPYRIN [Concomitant]
     Dosage: UNK , UNK
     Route: 048
  11. SOMAC [Concomitant]
     Dosage: 40 MG, DAILY (1/D)
     Route: 048
  12. TENOX [Concomitant]
     Indication: INSOMNIA
     Dosage: 20 MG, DAILY (1/D)
     Route: 048

REACTIONS (2)
  - OEDEMA PERIPHERAL [None]
  - PULMONARY EMBOLISM [None]
